FAERS Safety Report 11101244 (Version 1)
Quarter: 2015Q2

REPORT INFORMATION
  Report Type: Spontaneous
  Country: HU (occurrence: HU)
  Receive Date: 20150508
  Receipt Date: 20150508
  Transmission Date: 20150821
  Serious: Yes (Death)
  Sender: FDA-Public Use
  Company Number: HU-UCBSA-2015013634

PATIENT
  Age: 74 Year
  Sex: Male

DRUGS (1)
  1. CIMZIA [Suspect]
     Active Substance: CERTOLIZUMAB PEGOL
     Indication: RHEUMATOID ARTHRITIS
     Dosage: 200 MG/ML, EV 2 WEEKS(QOW)
     Route: 058
     Dates: start: 20141201, end: 201503

REACTIONS (1)
  - Death [Fatal]

NARRATIVE: CASE EVENT DATE: 201504
